FAERS Safety Report 5004821-6 (Version None)
Quarter: 2006Q2

REPORT INFORMATION
  Report Type: 
  Country: None (occurrence: None)
  Receive Date: 20060517
  Receipt Date: 20011003
  Transmission Date: 20061013
  Serious: Yes (Hospitalization, Disabling)
  Sender: FDA-Public Use
  Company Number: US-MERCK-01100585

PATIENT
  Age: 59 Year
  Sex: Male
  Weight: 78 kg

DRUGS (9)
  1. VIOXX [Suspect]
     Indication: ARTHRITIS
     Route: 048
     Dates: start: 20010318, end: 20010919
  2. DIMETHYL SULFONE [Concomitant]
     Route: 065
  3. POTASSIUM (UNSPECIFIED) [Concomitant]
     Route: 065
  4. FUROSEMIDE [Concomitant]
     Route: 065
  5. COMBIVENT [Concomitant]
     Route: 065
  6. IRON (UNSPECIFIED) [Concomitant]
     Route: 065
  7. TYLENOL EXTRA STRENGTH [Concomitant]
     Route: 065
  8. ZANTAC [Concomitant]
     Route: 065
  9. HEPARIN [Suspect]
     Route: 065

REACTIONS (34)
  - ACUTE FEBRILE NEUTROPHILIC DERMATOSIS [None]
  - ADRENAL INSUFFICIENCY [None]
  - ANAEMIA [None]
  - ARTERIOSCLEROSIS [None]
  - ASTHENIA [None]
  - ASTHMA [None]
  - BACTERIAL SEPSIS [None]
  - BLOOD CALCIUM DECREASED [None]
  - BLOOD MAGNESIUM DECREASED [None]
  - CARDIAC FAILURE CONGESTIVE [None]
  - CELLULITIS [None]
  - CEREBROVASCULAR ACCIDENT [None]
  - CHOLELITHIASIS [None]
  - COLONIC POLYP [None]
  - DEHYDRATION [None]
  - DIARRHOEA [None]
  - DUODENAL ULCER [None]
  - EMPHYSEMA [None]
  - GASTRIC MUCOSAL LESION [None]
  - HAEMORRHOIDS [None]
  - HEPARIN-INDUCED THROMBOCYTOPENIA [None]
  - HYPERTENSION [None]
  - HYPOKALAEMIA [None]
  - HYPOTENSION [None]
  - INFARCTION [None]
  - METABOLIC ACIDOSIS [None]
  - PERIRECTAL ABSCESS [None]
  - PLEURAL EFFUSION [None]
  - PULMONARY OEDEMA [None]
  - PYODERMA [None]
  - RASH [None]
  - RENAL FAILURE [None]
  - RESPIRATORY FAILURE [None]
  - SKIN FIBROSIS [None]
